FAERS Safety Report 5626984-1 (Version None)
Quarter: 2008Q1

REPORT INFORMATION
  Report Type: 
  Country: None (occurrence: None)
  Receive Date: 20080212
  Receipt Date: 20080129
  Transmission Date: 20080703
  Serious: Yes (Other)
  Sender: FDA-Public Use
  Company Number: 430001L08ITA

PATIENT
  Sex: Male

DRUGS (2)
  1. NOVANTRONE [Suspect]
     Indication: PROSTATE CANCER
     Dosage: 12 MG/M2, 1 IN 3 WEEKS, INTRAVENOUS (NOT OTHERWISE SPECIFIED
     Route: 042
  2. PREDNISONE TAB [Concomitant]

REACTIONS (1)
  - CARDIAC FAILURE CONGESTIVE [None]
